FAERS Safety Report 14166402 (Version 3)
Quarter: 2018Q2

REPORT INFORMATION
  Report Type: Report from Study
  Country: JP (occurrence: JP)
  Receive Date: 20171107
  Receipt Date: 20180423
  Transmission Date: 20180711
  Serious: Yes (Death, Life-Threatening, Other)
  Sender: FDA-Public Use
  Company Number: JP-PFIZER INC-2017474505

PATIENT
  Age: 77 Year
  Sex: Male
  Weight: 49.5 kg

DRUGS (13)
  1. TUBERACTIN /00300501/ [Suspect]
     Active Substance: ENVIOMYCIN SULFATE
     Indication: TUBERCULOSIS
     Dosage: 1 G, DAILY
     Route: 030
     Dates: start: 20170228, end: 20170321
  2. ZYVOX [Suspect]
     Active Substance: LINEZOLID
     Indication: TUBERCULOSIS
     Dosage: 1200 MG, DAILY
     Route: 048
     Dates: start: 20170228, end: 20170321
  3. FEXOFENADINE HYDROCHLORIDE. [Concomitant]
     Active Substance: FEXOFENADINE HYDROCHLORIDE
     Dosage: UNK
     Dates: end: 20170324
  4. PYRAMIDE [Concomitant]
     Active Substance: PYRAZINAMIDE
     Dosage: UNK
     Dates: start: 201603, end: 201702
  5. LAMPREN [Suspect]
     Active Substance: CLOFAZIMINE
     Indication: TUBERCULOSIS
     Dosage: 50 MG, DAILY
     Route: 048
     Dates: start: 20170228, end: 20170321
  6. URSODEOXYCHOLIC ACID [Concomitant]
     Active Substance: URSODIOL
     Dosage: UNK
     Dates: end: 20170324
  7. URIEF [Concomitant]
     Active Substance: SILODOSIN
     Dosage: UNK
     Dates: end: 20170324
  8. DELTYBA [Suspect]
     Active Substance: DELAMANID
     Indication: PULMONARY TUBERCULOSIS
     Dosage: 200 MG, DAILY
     Route: 048
     Dates: start: 20170223, end: 20170321
  9. TUBERMIN [Concomitant]
     Active Substance: ETHIONAMIDE
     Dosage: UNK
     Dates: start: 201603, end: 201702
  10. KANAMYCIN [Concomitant]
     Active Substance: KANAMYCIN\KANAMYCIN A SULFATE
     Dosage: UNK
     Dates: start: 201603, end: 201702
  11. FAMOTIDINE. [Concomitant]
     Active Substance: FAMOTIDINE
     Dosage: UNK
     Dates: end: 20170324
  12. ROZEREM [Concomitant]
     Active Substance: RAMELTEON
     Dosage: UNK
     Dates: end: 20170324
  13. CYCLOSERINE. [Concomitant]
     Active Substance: CYCLOSERINE
     Dosage: UNK
     Dates: start: 201603, end: 201702

REACTIONS (4)
  - Electrocardiogram QT prolonged [Recovered/Resolved]
  - Haemorrhagic diathesis [Unknown]
  - Platelet count decreased [Fatal]
  - Pneumonia aspiration [Recovered/Resolved]

NARRATIVE: CASE EVENT DATE: 20170307
